FAERS Safety Report 18604631 (Version 3)
Quarter: 2021Q3

REPORT INFORMATION
  Report Type: Report from Study
  Country: US (occurrence: US)
  Receive Date: 20201211
  Receipt Date: 20210708
  Transmission Date: 20211014
  Serious: Yes (Life-Threatening, Hospitalization)
  Sender: FDA-Public Use
  Company Number: US-INSMED, INC.-US-INS-20-01927

PATIENT
  Age: 61 Year
  Sex: Male

DRUGS (5)
  1. ARIKAYCE [Suspect]
     Active Substance: AMIKACIN
     Dosage: 590 MILLIGRAM
     Route: 055
     Dates: start: 2020, end: 2020
  2. ALBUTEROL. [Concomitant]
     Active Substance: ALBUTEROL
     Indication: PRODUCT USED FOR UNKNOWN INDICATION
  3. ARIKAYCE [Suspect]
     Active Substance: AMIKACIN
     Indication: MYCOBACTERIUM AVIUM COMPLEX INFECTION
     Dosage: 590 MILLIGRAM, QD
     Route: 055
     Dates: start: 20201008, end: 2020
  4. RIFAMPIN. [Concomitant]
     Active Substance: RIFAMPIN
     Indication: PRODUCT USED FOR UNKNOWN INDICATION
  5. AZITHROMYCIN ANHYDROUS. [Concomitant]
     Active Substance: AZITHROMYCIN ANHYDROUS
     Indication: PRODUCT USED FOR UNKNOWN INDICATION

REACTIONS (12)
  - Respiratory arrest [Recovered/Resolved]
  - Dyspnoea [Recovered/Resolved]
  - Pallor [Unknown]
  - Laziness [Recovered/Resolved]
  - Asthenia [Unknown]
  - Sputum discoloured [Recovered/Resolved]
  - Productive cough [Recovered/Resolved]
  - Hyperventilation [Recovered/Resolved]
  - Tinnitus [Not Recovered/Not Resolved]
  - Dizziness [Recovered/Resolved]
  - Loss of consciousness [Recovered/Resolved]
  - Presyncope [Recovered/Resolved]

NARRATIVE: CASE EVENT DATE: 2020
